FAERS Safety Report 7832922-3 (Version None)
Quarter: 2011Q4

REPORT INFORMATION
  Report Type: 
  Country: None (occurrence: None)
  Receive Date: 20111024
  Receipt Date: 20111019
  Transmission Date: 20120403
  Serious: Yes (Other)
  Sender: FDA-Public Use
  Company Number: JP-PFIZER INC-2011252429

PATIENT
  Sex: Female

DRUGS (2)
  1. LYRICA [Suspect]
     Indication: FIBROMYALGIA
     Dosage: 25 MG, 3X/DAY
     Route: 048
     Dates: start: 20110701, end: 20110901
  2. LYRICA [Suspect]
     Dosage: 25 MG, 4X/DAY
     Route: 048
     Dates: start: 20110901

REACTIONS (5)
  - HYPOACUSIS [None]
  - ERYTHEMA [None]
  - HYPOAESTHESIA [None]
  - OEDEMA [None]
  - WEIGHT INCREASED [None]
